FAERS Safety Report 6863358-X (Version None)
Quarter: 2010Q3

REPORT INFORMATION
  Report Type: 
  Country: None (occurrence: None)
  Receive Date: 20100721
  Receipt Date: 20100713
  Transmission Date: 20110219
  Serious: No
  Sender: FDA-Public Use
  Company Number: US-MILLENNIUM PHARMACEUTICALS, INC.-2010-02677

PATIENT

DRUGS (3)
  1. VELCADE [Suspect]
     Indication: MULTIPLE MYELOMA
     Dosage: 1 MG/M2, CYCLIC
  2. DEXAMETHASONE [Suspect]
     Dosage: 40 MG, CYCLIC
     Route: 042
  3. DOXORUBICIN HCL [Suspect]
     Indication: MULTIPLE MYELOMA
     Dosage: 5.0 MG/M2, CYCLIC
     Route: 041

REACTIONS (1)
  - INTERVERTEBRAL DISC PROTRUSION [None]
